FAERS Safety Report 5322152-1 (Version None)
Quarter: 2007Q2

REPORT INFORMATION
  Report Type: 
  Country: None (occurrence: None)
  Receive Date: 20070507
  Receipt Date: 20070423
  Transmission Date: 20071010
  Serious: Yes (Hospitalization)
  Sender: FDA-Public Use
  Company Number: 2007BI008709

PATIENT
  Age: 60 Year
  Sex: Female
  Weight: 46.2669 kg

DRUGS (3)
  1. AVONEX [Suspect]
     Indication: MULTIPLE SCLEROSIS
     Dosage: 30 UG;QW;IM
     Route: 030
     Dates: end: 20020101
  2. LEVOXYL [Concomitant]
  3. OXYCODONE HCL [Concomitant]

REACTIONS (4)
  - ARTHRALGIA [None]
  - CYST [None]
  - INTERVERTEBRAL DISC DEGENERATION [None]
  - SPINAL DISORDER [None]
